FAERS Safety Report 4412572-1 (Version None)
Quarter: 2004Q2

REPORT INFORMATION
  Report Type: 
  Country: None (occurrence: None)
  Receive Date: 20040630
  Receipt Date: 20040305
  Transmission Date: 20050107
  Serious: No
  Sender: FDA-Public Use
  Company Number: 04P-163-0252630-00

PATIENT
  Age: 68 Year
  Sex: Female
  Weight: 44.4525 kg

DRUGS (5)
  1. HUMIRA [Suspect]
     Indication: RHEUMATOID ARTHRITIS
     Dosage: 40MG, 1 IN 2 WK, SUBCUTANEOUS
     Route: 058
     Dates: start: 20040101
  2. DILTIAZEM HYDROCHLORIDE [Concomitant]
  3. LANSOPRAZOLE [Concomitant]
  4. SULFASALAZINE [Concomitant]
  5. OXYGEN [Concomitant]

REACTIONS (1)
  - DYSPNOEA [None]
